FAERS Safety Report 7130430-9 (Version None)
Quarter: 2010Q4

REPORT INFORMATION
  Report Type: 
  Country: None (occurrence: None)
  Receive Date: 20101201
  Receipt Date: 20101123
  Transmission Date: 20110411
  Serious: Yes (Hospitalization, Other)
  Sender: FDA-Public Use
  Company Number: US-SANOFI-AVENTIS-2010SA064574

PATIENT
  Age: 84 Year
  Sex: Female
  Weight: 61 kg

DRUGS (6)
  1. MULTAQ [Suspect]
     Indication: ATRIAL FIBRILLATION
     Route: 048
     Dates: start: 20100901, end: 20101001
  2. MULTAQ [Suspect]
     Route: 048
     Dates: start: 20101001
  3. ASPIRIN [Concomitant]
  4. METOPROLOL [Concomitant]
  5. PLAVIX [Concomitant]
  6. ALL OTHER THERAPEUTIC PRODUCTS [Concomitant]
     Dates: start: 20090101, end: 20100901

REACTIONS (6)
  - ABDOMINAL PAIN [None]
  - ATRIAL FIBRILLATION [None]
  - CONSTIPATION [None]
  - FLANK PAIN [None]
  - HEPATIC ENZYME INCREASED [None]
  - ROSACEA [None]
